FAERS Safety Report 24830140 (Version 1)
Quarter: 2025Q1

REPORT INFORMATION
  Report Type: Spontaneous
  Country: US (occurrence: None)
  Receive Date: 20250109
  Receipt Date: 20250109
  Transmission Date: 20250409
  Serious: Yes (Life-Threatening, Hospitalization)
  Sender: FDA-CTU
  Company Number: None

PATIENT
  Age: 60 Year
  Sex: Male
  Weight: 112.5 kg

DRUGS (2)
  1. AMIODARONE [Suspect]
     Active Substance: AMIODARONE
     Indication: Atrial fibrillation
  2. AMIODARONE [Suspect]
     Active Substance: AMIODARONE
     Indication: Atrial flutter

REACTIONS (27)
  - Infusion related reaction [None]
  - Oropharyngeal pain [None]
  - Lymphadenopathy [None]
  - Penis disorder [None]
  - Skin lesion [None]
  - Rhinalgia [None]
  - Rash [None]
  - Impaired healing [None]
  - Night sweats [None]
  - Weight decreased [None]
  - Decreased appetite [None]
  - Headache [None]
  - Nausea [None]
  - Fatigue [None]
  - Blood pressure decreased [None]
  - Atelectasis [None]
  - Splenomegaly [None]
  - Oedema [None]
  - Hepatomegaly [None]
  - Abdominal pain [None]
  - Fluid retention [None]
  - Hypervolaemia [None]
  - Platelet count decreased [None]
  - Haemoglobin decreased [None]
  - Vomiting [None]
  - Red blood cell transfusion [None]
  - Platelet transfusion [None]

NARRATIVE: CASE EVENT DATE: 20240702
